FAERS Safety Report 5366517-0 (Version None)
Quarter: 2007Q2

REPORT INFORMATION
  Report Type: 
  Country: None (occurrence: None)
  Receive Date: 20070622
  Receipt Date: 20070621
  Transmission Date: 20071010
  Serious: Yes (Death)
  Sender: FDA-Public Use
  Company Number: AU-AMGEN-00100629

PATIENT
  Sex: Male

DRUGS (7)
  1. ENBREL [Suspect]
     Indication: WEGENER'S GRANULOMATOSIS
     Route: 058
     Dates: start: 20000804, end: 20000807
  2. ENBREL [Suspect]
  3. GENTAMICIN [Concomitant]
  4. CEFTAZIDIME [Concomitant]
  5. METHYLPREDNISOLONE [Concomitant]
  6. GRANULOCYTE MACROPHAGE COLONY STIM FACTOR [Concomitant]
  7. INSULIN [Concomitant]

REACTIONS (6)
  - BONE MARROW FAILURE [None]
  - GRANULOMA [None]
  - LARGE INTESTINE PERFORATION [None]
  - MULTI-ORGAN FAILURE [None]
  - PNEUMONIA [None]
  - SEPSIS [None]
